FAERS Safety Report 5948476-2 (Version None)
Quarter: 2008Q4

REPORT INFORMATION
  Report Type: 
  Country: None (occurrence: None)
  Receive Date: 20081111
  Receipt Date: 20081104
  Transmission Date: 20090506
  Serious: Yes (Hospitalization)
  Sender: FDA-Public Use
  Company Number: A0753777A

PATIENT
  Age: 36 Year
  Sex: Female

DRUGS (3)
  1. LAPATINIB [Suspect]
     Dosage: 1250MG PER DAY
     Route: 048
     Dates: start: 20080410
  2. CAPECITABINE [Suspect]
     Dosage: 3300MG PER DAY
     Route: 048
     Dates: start: 20080410
  3. ZOMETA [Concomitant]
     Dosage: 4MG MONTHLY
     Route: 042
     Dates: start: 20010515

REACTIONS (2)
  - CATHETER SITE INFECTION [None]
  - CHILLS [None]
